FAERS Safety Report 19923371 (Version 1)
Quarter: 2021Q4

REPORT INFORMATION
  Report Type: Spontaneous
  Country: US (occurrence: US)
  Receive Date: 20211006
  Receipt Date: 20211006
  Transmission Date: 20220303
  Serious: Yes (Other)
  Sender: FDA-Public Use
  Company Number: US-MYLANLABS-2021M1069130

PATIENT
  Age: 55 Year
  Sex: Male

DRUGS (17)
  1. CYTARABINE [Suspect]
     Active Substance: CYTARABINE
     Indication: Large granular lymphocytosis
     Dosage: HIGH DOSE
     Route: 042
  2. PENTOSTATIN [Suspect]
     Active Substance: PENTOSTATIN
     Indication: Large granular lymphocytosis
     Dosage: 4 MILLIGRAM/SQ. METER, QW PENTOSTATIN 4 MG/M2 IV WEEKLY FOR FOUR DOSES
     Route: 042
  3. PENTOSTATIN [Suspect]
     Active Substance: PENTOSTATIN
     Dosage: 4 MILLIGRAM/SQ. METER EVERY 2 WEEKS
     Route: 042
  4. DOXORUBICIN [Suspect]
     Active Substance: DOXORUBICIN
     Indication: Large granular lymphocytosis
     Dosage: HYPER-CVAD REGIMEN
     Route: 065
  5. DEXAMETHASONE [Suspect]
     Active Substance: DEXAMETHASONE
     Indication: Large granular lymphocytosis
     Dosage: HYPER-CVAD REGIMEN
     Route: 065
  6. ALEMTUZUMAB [Suspect]
     Active Substance: ALEMTUZUMAB
     Indication: Large granular lymphocytosis
     Dosage: 3 MILLIGRAM STANDARD STARTING DOSE OF 3 MG
     Route: 042
  7. ALEMTUZUMAB [Suspect]
     Active Substance: ALEMTUZUMAB
     Dosage: 30 MILLIGRAM TITRATION UP TO 30 MG IV THREE TIMES A WEEK
     Route: 042
  8. CYCLOPHOSPHAMIDE [Suspect]
     Active Substance: CYCLOPHOSPHAMIDE
     Indication: Large granular lymphocytosis
     Dosage: HYPER-CVAD REGIMEN
     Route: 065
  9. VINCRISTINE [Suspect]
     Active Substance: VINCRISTINE
     Indication: Large granular lymphocytosis
     Dosage: HYPER-CVAD REGIMEN
     Route: 065
  10. LEVOFLOXACIN [Concomitant]
     Active Substance: LEVOFLOXACIN
     Indication: Prophylaxis
     Dosage: UNK
     Route: 065
  11. ACYCLOVIR [Concomitant]
     Active Substance: ACYCLOVIR
     Indication: Prophylaxis
     Dosage: UNK
     Route: 065
  12. FLUCONAZOLE [Concomitant]
     Active Substance: FLUCONAZOLE
     Indication: Prophylaxis
     Dosage: UNK
     Route: 065
  13. CYTARABINE [Concomitant]
     Active Substance: CYTARABINE
     Indication: Prophylaxis
     Dosage: UNK
     Route: 037
  14. BACTRIM [Concomitant]
     Active Substance: SULFAMETHOXAZOLE\TRIMETHOPRIM
     Indication: Prophylaxis
     Dosage: UNK
     Route: 065
  15. HYDROXYUREA [Concomitant]
     Active Substance: HYDROXYUREA
     Indication: Chemotherapy
     Dosage: UNK
     Route: 065
  16. MEPERIDINE [Concomitant]
     Active Substance: MEPERIDINE
     Indication: Symptomatic treatment
     Dosage: UNK
     Route: 042
  17. MEPERIDINE [Concomitant]
     Active Substance: MEPERIDINE
     Indication: Infusion related reaction

REACTIONS (5)
  - Cerebellar haemorrhage [Recovered/Resolved]
  - Headache [Recovered/Resolved]
  - Ataxia [Recovered/Resolved]
  - Pancytopenia [Recovered/Resolved]
  - Drug ineffective [Unknown]
